FAERS Safety Report 11270718 (Version 1)
Quarter: 2015Q3

REPORT INFORMATION
  Report Type: Spontaneous
  Country: CH (occurrence: CH)
  Receive Date: 20150714
  Receipt Date: 20150714
  Transmission Date: 20151125
  Serious: Yes (Other)
  Sender: FDA-Public Use
  Company Number: CH-BAYER-2015-373928

PATIENT
  Age: 41 Year
  Sex: Male

DRUGS (1)
  1. NEXAVAR [Suspect]
     Active Substance: SORAFENIB
     Indication: HEPATIC CANCER METASTATIC
     Dosage: UNK
     Dates: start: 20141031, end: 201506

REACTIONS (4)
  - Metastases to lymph nodes [None]
  - Drug ineffective [None]
  - Superior vena cava occlusion [None]
  - Hepatic cancer metastatic [None]

NARRATIVE: CASE EVENT DATE: 201506
